FAERS Safety Report 14327995 (Version 2)
Quarter: 2018Q1

REPORT INFORMATION
  Report Type: Report from Study
  Country: US (occurrence: US)
  Receive Date: 20171227
  Receipt Date: 20180302
  Transmission Date: 20180509
  Serious: Yes (Hospitalization)
  Sender: FDA-Public Use
  Company Number: US-BAYER-2017-243807

PATIENT
  Age: 72 Year
  Sex: Male

DRUGS (1)
  1. STIVARGA [Suspect]
     Active Substance: REGORAFENIB
     Indication: COLON CANCER
     Dosage: 160 MG DAILY WITH FOOD (LOW FAT BREAKFAST) FOR 21 DAYS ON AND 7 DAYS OFF THEN REPEAT
     Route: 048
     Dates: start: 20171109

REACTIONS (3)
  - Urinary tract infection [Not Recovered/Not Resolved]
  - Drug dose omission [None]
  - Sepsis [Not Recovered/Not Resolved]
